FAERS Safety Report 9645980 (Version 2)
Quarter: 2013Q4

REPORT INFORMATION
  Report Type: Spontaneous
  Country: US (occurrence: US)
  Receive Date: 20131025
  Receipt Date: 20131216
  Transmission Date: 20140711
  Serious: Yes (Death)
  Sender: FDA-Public Use
  Company Number: US-GLAXOSMITHKLINE-A1046957A

PATIENT
  Age: 52 Year
  Sex: Male

DRUGS (4)
  1. VOTRIENT [Suspect]
     Indication: NEOPLASM MALIGNANT
     Dosage: 800MG PER DAY
     Route: 048
     Dates: start: 20130724
  2. MIRTAZAPINE [Concomitant]
  3. OXYCODONE [Concomitant]
  4. IBUPROFEN [Concomitant]

REACTIONS (3)
  - Disease progression [Fatal]
  - Neoplasm malignant [Fatal]
  - Malignant peritoneal neoplasm [Fatal]
